FAERS Safety Report 5107271-7 (Version None)
Quarter: 2006Q3

REPORT INFORMATION
  Report Type: 
  Country: None (occurrence: None)
  Receive Date: 20060912
  Receipt Date: 20060829
  Transmission Date: 20061208
  Serious: Yes (Death)
  Sender: FDA-Public Use
  Company Number: WSDF_00574

PATIENT
  Sex: Male
  Weight: 70 kg

DRUGS (1)
  1. WINRHO SDF [Suspect]
     Indication: IDIOPATHIC THROMBOCYTOPENIC PURPURA
     Dosage: 250 ONCE IV
     Route: 042
     Dates: start: 20060824, end: 20060824

REACTIONS (12)
  - BACK PAIN [None]
  - BLOOD CREATININE INCREASED [None]
  - CARDIAC ARREST [None]
  - CHEST PAIN [None]
  - CHILLS [None]
  - INCORRECT DOSE ADMINISTERED [None]
  - MALAISE [None]
  - MEDICATION ERROR [None]
  - PAIN IN EXTREMITY [None]
  - RENAL FAILURE [None]
  - SOMNOLENCE [None]
  - TREMOR [None]
